FAERS Safety Report 14366984 (Version 2)
Quarter: 2018Q1

REPORT INFORMATION
  Report Type: Spontaneous
  Country: US (occurrence: US)
  Receive Date: 20180109
  Receipt Date: 20180125
  Transmission Date: 20180509
  Serious: Yes (Hospitalization, Other)
  Sender: FDA-Public Use
  Company Number: US-GLAXOSMITHKLINE-US2018000325

PATIENT
  Age: 66 Year
  Sex: Female

DRUGS (9)
  1. VALSARTAN. [Concomitant]
     Active Substance: VALSARTAN
  2. PERCOCET [Concomitant]
     Active Substance: ACETAMINOPHEN\OXYCODONE HYDROCHLORIDE
  3. CARVEDILOL. [Concomitant]
     Active Substance: CARVEDILOL
  4. OXYCONTIN [Concomitant]
     Active Substance: OXYCODONE HYDROCHLORIDE
  5. VENLAFAXINE HCL [Concomitant]
     Active Substance: VENLAFAXINE HYDROCHLORIDE
  6. ADVAIR DISKUS [Suspect]
     Active Substance: FLUTICASONE PROPIONATE\SALMETEROL XINAFOATE
     Indication: CHRONIC OBSTRUCTIVE PULMONARY DISEASE
     Dosage: 1 PUFF(S), QD
     Route: 055
     Dates: start: 2007
  7. BIOTIN [Concomitant]
     Active Substance: BIOTIN
  8. GLIPIZIDE. [Concomitant]
     Active Substance: GLIPIZIDE
  9. NIFEDIPINE. [Concomitant]
     Active Substance: NIFEDIPINE

REACTIONS (23)
  - Contusion [Unknown]
  - Post-traumatic stress disorder [Not Recovered/Not Resolved]
  - Wrong technique in device usage process [Unknown]
  - Ear haemorrhage [Recovering/Resolving]
  - Pruritus [Recovering/Resolving]
  - Cardiac disorder [Recovering/Resolving]
  - Underdose [Unknown]
  - Hypertension [Unknown]
  - Anxiety [Not Recovered/Not Resolved]
  - Pain [Recovered/Resolved]
  - Sleep disorder [Unknown]
  - Goitre [Unknown]
  - Intentional product misuse [Unknown]
  - Nasopharyngitis [Recovering/Resolving]
  - Gait disturbance [Recovering/Resolving]
  - Lung infection [Unknown]
  - Hypoperfusion [Not Recovered/Not Resolved]
  - Ear pruritus [Recovering/Resolving]
  - Arterial occlusive disease [Recovered/Resolved]
  - Endarterectomy [Recovered/Resolved]
  - Coronary artery bypass [Recovered/Resolved]
  - Diabetes mellitus [Unknown]
  - Fall [Recovering/Resolving]

NARRATIVE: CASE EVENT DATE: 2011
